FAERS Safety Report 6296285-X (Version None)
Quarter: 2009Q3

REPORT INFORMATION
  Report Type: 
  Country: None (occurrence: None)
  Receive Date: 20090804
  Receipt Date: 20090720
  Transmission Date: 20100115
  Serious: Yes (Hospitalization)
  Sender: FDA-Public Use
  Company Number: FR-NAPPMUNDI-GBR-2009-0005406

PATIENT
  Sex: Female

DRUGS (19)
  1. HYDROMORPHONE HCL [Suspect]
     Indication: PAIN
     Dosage: 8 MG, BID
     Route: 048
     Dates: start: 20090622
  2. OXYNORM [Suspect]
     Indication: PAIN
     Dosage: UNK
     Route: 048
     Dates: start: 20090421
  3. NEXAVAR [Suspect]
     Indication: DRUG USE FOR UNKNOWN INDICATION
     Dosage: 200 MG, DAILY
     Route: 048
     Dates: start: 20090519, end: 20090624
  4. INEXIUM                            /01479302/ [Suspect]
     Indication: DRUG USE FOR UNKNOWN INDICATION
     Dosage: 20 MG, DAILY
     Route: 048
     Dates: start: 20090420
  5. NEURONTIN [Suspect]
     Indication: DRUG USE FOR UNKNOWN INDICATION
     Dosage: 600 MG, TID
  6. NEURONTIN [Suspect]
     Dosage: 800 MG, TID
     Route: 048
     Dates: start: 20090427
  7. ANAFRANIL [Suspect]
     Indication: DRUG USE FOR UNKNOWN INDICATION
     Dosage: 150 MG, DAILY, ORAL THEN IV
     Route: 048
     Dates: start: 20090427
  8. PRAZEPAM [Suspect]
     Indication: DRUG USE FOR UNKNOWN INDICATION
     Dosage: 10 MG, DAILY
     Route: 048
     Dates: start: 20090418
  9. DAFALGAN                           /00020001/ [Suspect]
     Indication: PAIN
     Dosage: 500 MG, MAXIMUM 2 CAPSULES DAILY
     Route: 048
     Dates: start: 20090622
  10. PRIMPERAN                          /00041901/ [Suspect]
     Indication: NAUSEA
     Dosage: 10 MG, PRN
     Route: 048
     Dates: start: 20090420
  11. MAGNE-B6 ORAL [Suspect]
     Indication: DRUG USE FOR UNKNOWN INDICATION
     Dosage: 100/10 MG, 2 CAPSULES BID
     Route: 048
     Dates: start: 20090506
  12. LANSOYL                            /00103901/ [Suspect]
     Indication: DRUG USE FOR UNKNOWN INDICATION
     Dosage: 3 UNIT, DAILY
     Route: 048
     Dates: start: 20090418
  13. KETAMINE HCL [Suspect]
     Indication: DRUG USE FOR UNKNOWN INDICATION
     Dosage: 70 MG, DAILY
     Route: 042
     Dates: end: 20090626
  14. KETAMINE HCL [Suspect]
     Dosage: 50 MG, DAILY
     Route: 042
  15. KETAMINE HCL [Suspect]
     Dosage: 35 MG, DAILY
     Route: 042
  16. KETAMINE HCL [Suspect]
     Dosage: 20 MG, DAILY
     Route: 042
     Dates: start: 20090623
  17. VITAMIN B1 AND B6 [Concomitant]
     Dosage: UNK
     Route: 065
  18. MYCOSTATIN [Concomitant]
     Route: 065
  19. BICARBONATE [Concomitant]
     Route: 065

REACTIONS (3)
  - BLOOD ALKALINE PHOSPHATASE INCREASED [None]
  - GAMMA-GLUTAMYLTRANSFERASE INCREASED [None]
  - TRANSAMINASES INCREASED [None]
